FAERS Safety Report 4745438-8 (Version None)
Quarter: 2005Q3

REPORT INFORMATION
  Report Type: 
  Country: None (occurrence: None)
  Receive Date: 20050812
  Receipt Date: 20041007
  Transmission Date: 20060218
  Serious: Yes (Other)
  Sender: FDA-Public Use
  Company Number: PHEH2004US10793

PATIENT
  Age: 75 Year
  Sex: Female

DRUGS (1)
  1. VISUDYNE [Suspect]
     Indication: MACULAR DEGENERATION
     Dosage: 22 ML DAILY  IV
     Route: 042
     Dates: start: 20040927, end: 20040927

REACTIONS (2)
  - BURNS SECOND DEGREE [None]
  - INJECTION SITE EXTRAVASATION [None]
